FAERS Safety Report 4804541-4 (Version None)
Quarter: 2005Q4

REPORT INFORMATION
  Report Type: 
  Country: None (occurrence: None)
  Receive Date: 20051020
  Receipt Date: 20050808
  Transmission Date: 20060501
  Serious: Yes (Other)
  Sender: FDA-Public Use
  Company Number: JP-NOVOPROD-246113

PATIENT
  Age: 13 Year
  Sex: Male
  Weight: 31 kg

DRUGS (2)
  1. NORDITROPIN NORDIFLEX [Suspect]
     Indication: CHONDRODYSTROPHY
     Dosage: 9.4 MG WEEKLY
     Route: 058
     Dates: start: 20040908, end: 20050710
  2. NORDITROPIN NORDIFLEX [Suspect]
     Dosage: 10.5 MG WEEKLY
     Route: 058
     Dates: start: 20050711, end: 20050807

REACTIONS (2)
  - DIFFICULTY IN WALKING [None]
  - HYPOAESTHESIA [None]
